FAERS Safety Report 8241735-2 (Version None)
Quarter: 2012Q1

REPORT INFORMATION
  Report Type: 
  Country: None (occurrence: None)
  Receive Date: 20120328
  Receipt Date: 20120319
  Transmission Date: 20120608
  Serious: Yes (Hospitalization, Disabling)
  Sender: FDA-Public Use
  Company Number: JP-AMGEN-JPNCT2012019623

PATIENT
  Age: 63 Year
  Sex: Male

DRUGS (9)
  1. URALYT [Concomitant]
     Dosage: UNKNOWN
     Route: 065
  2. RABEPRAZOLE SODIUM [Concomitant]
     Dosage: UNKNOWN
     Route: 065
  3. KETOPROFEN [Concomitant]
     Dosage: UNKNOWN
     Route: 065
  4. BLINDED DENOSUMAB [Suspect]
     Indication: RHEUMATOID ARTHRITIS
     Route: 058
     Dates: start: 20110704, end: 20120305
  5. PLACEBO [Suspect]
     Indication: RHEUMATOID ARTHRITIS
     Route: 058
     Dates: start: 20110704, end: 20120305
  6. FOLIC ACID [Concomitant]
     Dosage: UNKNOWN
     Route: 065
  7. PROTECADIN [Concomitant]
     Dosage: UNKNOWN
     Route: 065
  8. CALCIUM CARBONATE [Concomitant]
     Dosage: UNKNOWN
     Route: 065
  9. METHOTREXATE [Concomitant]
     Dosage: UNKNOWN
     Route: 065

REACTIONS (1)
  - CEREBRAL HAEMORRHAGE [None]
